FAERS Safety Report 14213318 (Version 4)
Quarter: 2020Q1

REPORT INFORMATION
  Report Type: Report from Study
  Country: CA (occurrence: CA)
  Receive Date: 20171122
  Receipt Date: 20200214
  Transmission Date: 20200409
  Serious: Yes (Other)
  Sender: FDA-Public Use
  Company Number: CA-ROCHE-1784000

PATIENT
  Age: 53 Year
  Sex: Female
  Weight: 55 kg

DRUGS (11)
  1. METHOTREXATE. [Concomitant]
     Active Substance: METHOTREXATE
  2. ACTEMRA [Suspect]
     Active Substance: TOCILIZUMAB
     Indication: RHEUMATOID ARTHRITIS
     Route: 042
     Dates: start: 20160623, end: 20161207
  3. ACTEMRA [Suspect]
     Active Substance: TOCILIZUMAB
     Indication: RHEUMATOID ARTHRITIS
     Dosage: EVERY OTHER WEEK
     Route: 058
     Dates: start: 20161221
  4. ACTEMRA [Suspect]
     Active Substance: TOCILIZUMAB
     Route: 058
     Dates: start: 2017
  5. ACTEMRA [Suspect]
     Active Substance: TOCILIZUMAB
     Route: 058
     Dates: start: 20200207
  6. PREDNISONE. [Concomitant]
     Active Substance: PREDNISONE
  7. ACTEMRA [Suspect]
     Active Substance: TOCILIZUMAB
     Route: 058
     Dates: start: 20180503
  8. ERYTHROMYCIN. [Concomitant]
     Active Substance: ERYTHROMYCIN
  9. ELIDEL [Concomitant]
     Active Substance: PIMECROLIMUS
  10. ACTEMRA [Suspect]
     Active Substance: TOCILIZUMAB
     Dosage: ONGOING-YES
     Route: 058
  11. SENNOSIDES. [Concomitant]
     Active Substance: SENNOSIDES

REACTIONS (14)
  - Headache [Recovered/Resolved]
  - Rash pruritic [Unknown]
  - Throat irritation [Unknown]
  - Feeling cold [Unknown]
  - Cellulitis [Unknown]
  - Palpitations [Unknown]
  - Throat tightness [Unknown]
  - Tachycardia [Recovered/Resolved]
  - Chest discomfort [Unknown]
  - Headache [Unknown]
  - Weight increased [Unknown]
  - Cough [Unknown]
  - Throat tightness [Unknown]
  - Chest discomfort [Recovered/Resolved]

NARRATIVE: CASE EVENT DATE: 20160623
